FAERS Safety Report 7806004-0 (Version None)
Quarter: 2011Q4

REPORT INFORMATION
  Report Type: 
  Country: None (occurrence: None)
  Receive Date: 20111011
  Receipt Date: 20110929
  Transmission Date: 20120403
  Serious: Yes (Hospitalization, Other)
  Sender: FDA-Public Use
  Company Number: US-US-EMD SERONO, INC.-7083928

PATIENT
  Sex: Female
  Weight: 55 kg

DRUGS (3)
  1. VIMPAT [Concomitant]
     Indication: CONVULSION
  2. REBIF [Suspect]
     Indication: MULTIPLE SCLEROSIS
     Dates: start: 20080901, end: 20110822
  3. CYMBALTA [Concomitant]
     Indication: NEUROPATHY PERIPHERAL

REACTIONS (2)
  - CONVULSION [None]
  - SUICIDAL IDEATION [None]
